FAERS Safety Report 8106046-4 (Version None)
Quarter: 2012Q1

REPORT INFORMATION
  Report Type: 
  Country: None (occurrence: None)
  Receive Date: 20120202
  Receipt Date: 20081022
  Transmission Date: 20120608
  Serious: No
  Sender: FDA-Public Use
  Company Number: 2008BI028661

PATIENT
  Age: 49 Year
  Sex: Male

DRUGS (1)
  1. TYSABRI [Suspect]
     Indication: MULTIPLE SCLEROSIS
     Route: 042
     Dates: start: 20080605, end: 20110111

REACTIONS (2)
  - DRUG INEFFECTIVE [None]
  - GAIT DISTURBANCE [None]
